FAERS Safety Report 13282009 (Version 1)
Quarter: 2017Q1

REPORT INFORMATION
  Report Type: Spontaneous
  Country: US (occurrence: US)
  Receive Date: 20170301
  Receipt Date: 20170301
  Transmission Date: 20170428
  Serious: Yes (Hospitalization)
  Sender: FDA-Public Use
  Company Number: None

PATIENT
  Age: 73 Year
  Sex: Female

DRUGS (5)
  1. HYDROCORTISONE. [Suspect]
     Active Substance: HYDROCORTISONE
  2. DENOSUMAB [Suspect]
     Active Substance: DENOSUMAB
  3. PANTOPRAZOLE [Suspect]
     Active Substance: PANTOPRAZOLE SODIUM
  4. OMEPRAZOLE. [Suspect]
     Active Substance: OMEPRAZOLE
  5. RANITIDINE. [Suspect]
     Active Substance: RANITIDINE

REACTIONS (3)
  - Clostridium difficile colitis [None]
  - Respiratory failure [None]
  - Hypertension [None]

NARRATIVE: CASE EVENT DATE: 20150105
